FAERS Safety Report 20775496 (Version 1)
Quarter: 2022Q2

REPORT INFORMATION
  Report Type: Spontaneous
  Country: US (occurrence: US)
  Receive Date: 20220502
  Receipt Date: 20220502
  Transmission Date: 20220720
  Serious: No
  Sender: FDA-Public Use
  Company Number: US-GLENMARK PHARMACEUTICALS-2022GMK071083

PATIENT

DRUGS (1)
  1. IMIQUIMOD [Suspect]
     Active Substance: IMIQUIMOD
     Indication: Product used for unknown indication
     Dosage: UNK, (1 PACKET 3 TIMES A WEEK)
     Route: 061

REACTIONS (3)
  - Poor quality product administered [Unknown]
  - Product physical consistency issue [Unknown]
  - No adverse event [Unknown]
